FAERS Safety Report 25633297 (Version 2)
Quarter: 2025Q3

REPORT INFORMATION
  Report Type: Report from Study
  Country: US (occurrence: US)
  Receive Date: 20250801
  Receipt Date: 20250815
  Transmission Date: 20251020
  Serious: Yes (Hospitalization, Other)
  Sender: EMD SERONO INC
  Company Number: US-Merck Healthcare KGaA-2025038102

PATIENT
  Age: 0 Hour
  Sex: Female

DRUGS (1)
  1. MAVENCLAD [Suspect]
     Active Substance: CLADRIBINE
     Indication: Multiple sclerosis

REACTIONS (4)
  - Premature baby [Recovered/Resolved]
  - Oxygen saturation decreased [Unknown]
  - Body temperature decreased [Unknown]
  - Poor feeding infant [Unknown]

NARRATIVE: CASE EVENT DATE: 20241127
